FAERS Safety Report 6268288-2 (Version None)
Quarter: 2009Q3

REPORT INFORMATION
  Report Type: 
  Country: None (occurrence: None)
  Receive Date: 20090713
  Receipt Date: 20090713
  Transmission Date: 20100115
  Serious: Yes (Other)
  Sender: FDA-Public Use
  Company Number: None

PATIENT
  Sex: Female
  Weight: 61.2356 kg

DRUGS (4)
  1. PAXIL [Suspect]
     Indication: ANXIETY
     Dosage: 60 MG DAILY 20MG 3XDAILY PO
     Route: 048
     Dates: start: 20010301, end: 20081201
  2. PAXIL [Suspect]
     Indication: BIPOLAR I DISORDER
     Dosage: 60 MG DAILY 20MG 3XDAILY PO
     Route: 048
     Dates: start: 20010301, end: 20081201
  3. LITHIUM CARBONATE [Concomitant]
  4. BUSPAR [Concomitant]

REACTIONS (17)
  - ABDOMINAL PAIN UPPER [None]
  - AGORAPHOBIA [None]
  - ALTERED STATE OF CONSCIOUSNESS [None]
  - BIPOLAR I DISORDER [None]
  - CONSTIPATION [None]
  - DEPENDENCE [None]
  - DISEASE RECURRENCE [None]
  - DRUG WITHDRAWAL SYNDROME [None]
  - FRUSTRATION [None]
  - GASTROINTESTINAL DISORDER [None]
  - HALLUCINATION [None]
  - PAIN [None]
  - PHONOPHOBIA [None]
  - PHOTOPHOBIA [None]
  - QUALITY OF LIFE DECREASED [None]
  - SOCIAL AVOIDANT BEHAVIOUR [None]
  - THERAPEUTIC RESPONSE UNEXPECTED [None]
